FAERS Safety Report 8908444 (Version 1)
Quarter: 2012Q4

REPORT INFORMATION
  Report Type: 
  Country: US (occurrence: US)
  Receive Date: 20121114
  Receipt Date: 20121114
  Transmission Date: 20130627
  Serious: No
  Sender: FDA-Public Use
  Company Number: US-PFIZER INC-2012283786

PATIENT
  Sex: Female

DRUGS (2)
  1. LYRICA [Suspect]
  2. CELEBREX [Suspect]

REACTIONS (2)
  - Skin disorder [Unknown]
  - Rash [Unknown]
